FAERS Safety Report 4412762-8 (Version None)
Quarter: 2004Q3

REPORT INFORMATION
  Report Type: 
  Country: None (occurrence: None)
  Receive Date: 20040802
  Receipt Date: 20040401
  Transmission Date: 20050211
  Serious: Yes (Disabling)
  Sender: FDA-Public Use
  Company Number: PHRM2004FR01441

PATIENT
  Age: 16 Year
  Sex: Male
  Weight: 82 kg

DRUGS (3)
  1. LAMISIL [Suspect]
     Indication: TINEA PEDIS
     Dosage: 250 MG, QD
     Route: 048
     Dates: start: 20031215, end: 20040131
  2. LAMISIL [Suspect]
     Dosage: 250 MG, QD
     Route: 048
     Dates: start: 20040203, end: 20040316
  3. ZELITREX [Concomitant]
     Dates: start: 20040207, end: 20040216

REACTIONS (1)
  - SKIN STRIAE [None]
